FAERS Safety Report 14591512 (Version 1)
Quarter: 2018Q1

REPORT INFORMATION
  Report Type: Report from Study
  Country: US (occurrence: US)
  Receive Date: 20180302
  Receipt Date: 20180302
  Transmission Date: 20180509
  Serious: Yes (Hospitalization)
  Sender: FDA-Public Use
  Company Number: US-SA-2018SA059132

PATIENT
  Age: 5 Year
  Sex: Male

DRUGS (1)
  1. CEREZYME [Suspect]
     Active Substance: IMIGLUCERASE
     Indication: GAUCHER^S DISEASE
     Dosage: DOSE : 1600 (UNITS NOT GIVEN)?FREQUENCY : Q2
     Route: 041
     Dates: start: 20180216

REACTIONS (1)
  - Staphylococcal infection [Not Recovered/Not Resolved]
